FAERS Safety Report 4321098-5 (Version None)
Quarter: 2004Q1

REPORT INFORMATION
  Report Type: 
  Country: None (occurrence: None)
  Receive Date: 20040322
  Receipt Date: 20040322
  Transmission Date: 20041129
  Serious: Yes (Life-Threatening, Hospitalization, Disabling)
  Sender: FDA-Public Use
  Company Number: None

PATIENT

DRUGS (2)
  1. TRAMADOL HCL [Suspect]
     Indication: FIBROMYALGIA
     Dosage: QID ORAL
     Route: 048
     Dates: start: 20010110, end: 20030102
  2. OXYCONTIN [Suspect]
     Indication: FIBROMYALGIA
     Dosage: 40 MG TID ORAL
     Route: 048
     Dates: start: 20030215, end: 20030820

REACTIONS (1)
  - DRUG TOXICITY [None]
